FAERS Safety Report 5815048-X (Version None)
Quarter: 2008Q3

REPORT INFORMATION
  Report Type: 
  Country: None (occurrence: None)
  Receive Date: 20080718
  Receipt Date: 20080710
  Transmission Date: 20090109
  Serious: Yes (Hospitalization)
  Sender: FDA-Public Use
  Company Number: B0529609A

PATIENT
  Age: 70 Year
  Sex: Female

DRUGS (1)
  1. DEROXAT [Suspect]
     Route: 065
     Dates: start: 20080401

REACTIONS (7)
  - ATAXIA [None]
  - DEPRESSED LEVEL OF CONSCIOUSNESS [None]
  - GAIT DISTURBANCE [None]
  - HYPOKALAEMIA [None]
  - HYPONATRAEMIA [None]
  - INAPPROPRIATE ANTIDIURETIC HORMONE SECRETION [None]
  - SPEECH DISORDER [None]
